FAERS Safety Report 11391351 (Version 11)
Quarter: 2020Q2

REPORT INFORMATION
  Report Type: Report from Study
  Country: US (occurrence: US)
  Receive Date: 20150818
  Receipt Date: 20200521
  Transmission Date: 20200713
  Serious: Yes (Other)
  Sender: FDA-Public Use
  Company Number: PHHY2015US005626

PATIENT
  Age: 30 Year
  Sex: Female
  Weight: 81.19 kg

DRUGS (4)
  1. GILENYA [Suspect]
     Active Substance: FINGOLIMOD HYDROCHLORIDE
     Dosage: UNK, QD
     Route: 048
  2. PRENATAL VITAMINS [Concomitant]
     Active Substance: VITAMINS
     Indication: PRODUCT USED FOR UNKNOWN INDICATION
     Dosage: UNK
     Route: 065
     Dates: start: 20150210
  3. GILENYA [Suspect]
     Active Substance: FINGOLIMOD HYDROCHLORIDE
     Indication: MULTIPLE SCLEROSIS
     Dosage: 0.5 MG, QD
     Route: 048
     Dates: start: 20141029, end: 20150207
  4. LEXAPRO [Concomitant]
     Active Substance: ESCITALOPRAM OXALATE
     Indication: DEPRESSION
     Dosage: 20 MG, QD
     Route: 048
     Dates: start: 2012, end: 20150207

REACTIONS (14)
  - Dysplastic naevus [Recovered/Resolved]
  - White matter lesion [Recovered/Resolved]
  - Gait disturbance [Unknown]
  - Bladder dysfunction [Unknown]
  - Aphasia [Not Recovered/Not Resolved]
  - Aspartate aminotransferase decreased [Unknown]
  - Micturition urgency [Unknown]
  - Arthralgia [Unknown]
  - Urinary incontinence [Unknown]
  - Hypertonic bladder [Unknown]
  - Fatigue [Not Recovered/Not Resolved]
  - Vitamin D decreased [Unknown]
  - Precancerous skin lesion [Recovered/Resolved]
  - Lymphocyte count increased [Unknown]

NARRATIVE: CASE EVENT DATE: 20141218
